FAERS Safety Report 19467576 (Version 1)
Quarter: 2021Q2

REPORT INFORMATION
  Report Type: Spontaneous
  Country: US (occurrence: US)
  Receive Date: 20210628
  Receipt Date: 20210628
  Transmission Date: 20210717
  Serious: No
  Sender: FDA-Public Use
  Company Number: US-009507513-2106USA005279

PATIENT
  Age: 57 Year
  Sex: Female

DRUGS (1)
  1. INTEGRILIN [Suspect]
     Active Substance: EPTIFIBATIDE
     Indication: CEREBRAL ARTERY THROMBOSIS
     Dosage: BOLUS DOSE

REACTIONS (1)
  - Off label use [Unknown]
